FAERS Safety Report 20431570 (Version 4)
Quarter: 2022Q4

REPORT INFORMATION
  Report Type: Report from Study
  Country: CA (occurrence: CA)
  Receive Date: 20220204
  Receipt Date: 20221216
  Transmission Date: 20230112
  Serious: Yes (Hospitalization)
  Sender: FDA-Public Use
  Company Number: CA-JNJFOC-20220152758

PATIENT
  Age: 65 Year
  Sex: Female
  Weight: 87.4 kg

DRUGS (17)
  1. SIMPONI [Suspect]
     Active Substance: GOLIMUMAB
     Indication: Rheumatoid arthritis
     Route: 058
     Dates: start: 20210226, end: 20220126
  2. FOLIC ACID [Concomitant]
     Active Substance: FOLIC ACID
     Indication: Prophylaxis
     Route: 065
     Dates: start: 2007
  3. ERGOCALCIFEROL [Concomitant]
     Active Substance: ERGOCALCIFEROL
     Indication: Nutritional supplementation
     Route: 065
     Dates: start: 2018
  4. CALCIUM\CHOLECALCIFEROL [Concomitant]
     Active Substance: CALCIUM\CHOLECALCIFEROL
     Indication: Nutritional supplementation
     Route: 065
     Dates: start: 2020
  5. FISH OIL [Concomitant]
     Active Substance: FISH OIL
     Indication: Nutritional supplementation
     Route: 065
     Dates: start: 1976
  6. B100 [Concomitant]
     Active Substance: CITRIC ACID MONOHYDRATE\SODIUM CHLORITE
     Indication: Nutritional supplementation
     Route: 065
     Dates: start: 1976
  7. PROLIA [Concomitant]
     Active Substance: DENOSUMAB
     Indication: Product used for unknown indication
     Route: 065
     Dates: start: 20200212
  8. MINERALS\VITAMINS [Concomitant]
     Active Substance: MINERALS\VITAMINS
     Indication: Eye disorder
     Route: 065
     Dates: start: 2016
  9. COVID-19 VACCINE [Concomitant]
     Indication: Prophylaxis
     Route: 065
     Dates: start: 20210405, end: 20210405
  10. COVID-19 VACCINE [Concomitant]
     Route: 065
     Dates: start: 20210611, end: 20210611
  11. COVID-19 VACCINE [Concomitant]
     Route: 065
     Dates: start: 20211107, end: 20211107
  12. INFLUENZA VIRUS VACCINE [Concomitant]
     Active Substance: INFLUENZA VIRUS VACCINE
     Indication: Prophylaxis
     Dates: start: 20211014, end: 20211014
  13. HYDROCHLOROTHIAZIDE\VALSARTAN [Concomitant]
     Active Substance: HYDROCHLOROTHIAZIDE\VALSARTAN
     Dates: start: 20211014
  14. DIMENHYDRINATE [Concomitant]
     Active Substance: DIMENHYDRINATE
     Indication: Nausea
     Dates: start: 20211113, end: 20211117
  15. ONDANSETRON [Concomitant]
     Active Substance: ONDANSETRON
     Indication: Nausea
     Dates: start: 20211113, end: 20211117
  16. TINZAPARIN [Concomitant]
     Active Substance: TINZAPARIN
     Indication: Thrombosis prophylaxis
     Dates: start: 20211113, end: 20211114
  17. NITROFURANTOIN [Concomitant]
     Active Substance: NITROFURANTOIN
     Indication: Urinary tract infection
     Route: 065
     Dates: start: 20211020

REACTIONS (1)
  - Diverticulitis intestinal perforated [Recovered/Resolved with Sequelae]

NARRATIVE: CASE EVENT DATE: 20211113
